FAERS Safety Report 15988457 (Version 2)
Quarter: 2019Q1

REPORT INFORMATION
  Report Type: Spontaneous
  Country: FR (occurrence: FR)
  Receive Date: 20190221
  Receipt Date: 20190318
  Transmission Date: 20190418
  Serious: Yes (Hospitalization)
  Sender: FDA-Public Use
  Company Number: FR-ACCORD-108172

PATIENT
  Age: 32 Year
  Sex: Female

DRUGS (8)
  1. BACTRIM [Suspect]
     Active Substance: SULFAMETHOXAZOLE\TRIMETHOPRIM
     Indication: PNEUMOCYSTIS JIROVECII PNEUMONIA
     Route: 048
     Dates: start: 20180618, end: 20180625
  2. NIVESTIM [Concomitant]
     Active Substance: FILGRASTIM
     Route: 058
     Dates: start: 20180625, end: 20180628
  3. CISPLATIN. [Suspect]
     Active Substance: CISPLATIN
     Indication: ADRENAL GLAND CANCER
     Route: 041
     Dates: start: 20180621, end: 20180623
  4. PIPERACILLINE TAZOBACTAM MYLAN [Suspect]
     Active Substance: PIPERACILLIN SODIUM\TAZOBACTAM SODIUM
     Indication: BACTERIAL INFECTION
     Route: 041
     Dates: start: 20180619, end: 20180625
  5. EMEND [Suspect]
     Active Substance: APREPITANT
     Indication: PROPHYLAXIS OF NAUSEA AND VOMITING
     Route: 048
     Dates: start: 20180621, end: 20180627
  6. ROVAMYCINE [Suspect]
     Active Substance: SPIRAMYCIN
     Indication: PNEUMOCYSTIS JIROVECII PNEUMONIA
     Route: 041
     Dates: start: 20180618, end: 20180625
  7. METOPIRONE [Concomitant]
     Active Substance: METYRAPONE
     Indication: CUSHING^S SYNDROME
     Dates: start: 20180619, end: 20180703
  8. LYSODREN [Concomitant]
     Active Substance: MITOTANE
     Indication: CUSHING^S SYNDROME
     Route: 048
     Dates: start: 20180621, end: 20180625

REACTIONS (1)
  - Hepatocellular injury [Recovered/Resolved]

NARRATIVE: CASE EVENT DATE: 20180623
